FAERS Safety Report 9835507 (Version 2)
Quarter: 2014Q1

REPORT INFORMATION
  Report Type: Spontaneous
  Country: US (occurrence: US)
  Receive Date: 20140122
  Receipt Date: 20140122
  Transmission Date: 20141002
  Serious: No
  Sender: FDA-Public Use
  Company Number: US-BRISTOL-MYERS SQUIBB COMPANY-19711134

PATIENT
  Age: 82 Year
  Sex: Male
  Weight: 78.46 kg

DRUGS (12)
  1. ELIQUIS [Suspect]
     Indication: ATRIAL FIBRILLATION
     Route: 048
     Dates: start: 20131025
  2. WARFARIN SODIUM [Suspect]
  3. GABAPENTIN [Concomitant]
  4. AMLODIPINE BESYLATE [Concomitant]
  5. METOPROLOL [Concomitant]
     Route: 048
  6. LISINOPRIL [Concomitant]
  7. LANSOPRAZOLE [Concomitant]
  8. PREDNISONE [Concomitant]
  9. FUROSEMIDE [Concomitant]
  10. MANGANESE [Concomitant]
  11. LASIX [Concomitant]
  12. HYDROCODONE + ACETAMINOPHEN [Concomitant]
     Dosage: 1 DF = 5/500 MG.

REACTIONS (6)
  - Flushing [Unknown]
  - Erythema [Unknown]
  - Energy increased [Unknown]
  - Increased appetite [Unknown]
  - Lethargy [Unknown]
  - Product size issue [Unknown]
